FAERS Safety Report 14370378 (Version 4)
Quarter: 2018Q1

REPORT INFORMATION
  Report Type: Spontaneous
  Country: JP (occurrence: JP)
  Receive Date: 20180110
  Receipt Date: 20180319
  Transmission Date: 20180509
  Serious: Yes (Hospitalization, Other)
  Sender: FDA-Public Use
  Company Number: JP-009507513-1801JPN000556J

PATIENT
  Age: 62 Year
  Sex: Male
  Weight: 59 kg

DRUGS (2)
  1. KEYTRUDA [Suspect]
     Active Substance: PEMBROLIZUMAB
     Indication: NON-SMALL CELL LUNG CANCER
     Dosage: 200 MG, Q3W
     Route: 041
     Dates: start: 20171101, end: 20171213
  2. SPIRIVA [Concomitant]
     Active Substance: TIOTROPIUM BROMIDE MONOHYDRATE
     Indication: BRONCHOSPASM
     Dosage: UNK UNK, QD
     Route: 055
     Dates: start: 201609, end: 20180314

REACTIONS (4)
  - Malignant neoplasm progression [Unknown]
  - Bronchiolitis [Not Recovered/Not Resolved]
  - Interstitial lung disease [Recovered/Resolved]
  - Malignant pleural effusion [Unknown]

NARRATIVE: CASE EVENT DATE: 20171229
